FAERS Safety Report 16274718 (Version 2)
Quarter: 2019Q2

REPORT INFORMATION
  Report Type: Spontaneous
  Country: US (occurrence: US)
  Receive Date: 20190506
  Receipt Date: 20190524
  Transmission Date: 20190711
  Serious: Yes (Other)
  Sender: FDA-Public Use
  Company Number: US-TARO-2019TAR00344

PATIENT
  Age: 65 Year
  Sex: Female
  Weight: 79.91 kg

DRUGS (8)
  1. ^PAIN 211.3CF^ (UNSPECIFIED) [Suspect]
     Active Substance: UNSPECIFIED INGREDIENT
     Indication: PAIN
     Route: 061
  2. NAFTIN [Concomitant]
     Active Substance: NAFTIFINE HYDROCHLORIDE
  3. DUEXIS [Concomitant]
     Active Substance: FAMOTIDINE\IBUPROFEN
     Dosage: UNK
     Dates: start: 2015
  4. ^PAIN 251.0 CF^ (LIDOCAINE) [Suspect]
     Active Substance: LIDOCAINE
     Route: 061
  5. LIDOCAINE. [Suspect]
     Active Substance: LIDOCAINE
     Indication: ARTHRALGIA
     Dosage: 1 G, 3 TO 4 TIMES A DAY
     Route: 061
     Dates: start: 201810
  6. NEURONTIN [Suspect]
     Active Substance: GABAPENTIN
     Indication: PAIN
     Route: 061
  7. LEVOTHYROXINE (MYLAN) [Concomitant]
     Active Substance: LEVOTHYROXINE
     Dosage: UNK
  8. VITAMIN 5 3000 [Concomitant]

REACTIONS (6)
  - Hypersensitivity [Recovered/Resolved]
  - Pharyngeal swelling [Recovered/Resolved]
  - Off label use [Recovered/Resolved]
  - Angioedema [Recovered/Resolved]
  - Swollen tongue [Recovered/Resolved]
  - Rash [Recovered/Resolved]

NARRATIVE: CASE EVENT DATE: 20181031
